FAERS Safety Report 7238500-1 (Version None)
Quarter: 2011Q1

REPORT INFORMATION
  Report Type: 
  Country: None (occurrence: None)
  Receive Date: 20110121
  Receipt Date: 20110107
  Transmission Date: 20110831
  Serious: Yes (Other)
  Sender: FDA-Public Use
  Company Number: US-BIOGENIDEC-2010BI013586

PATIENT
  Age: 27 Year
  Sex: Female

DRUGS (2)
  1. TYSABRI [Suspect]
     Indication: MULTIPLE SCLEROSIS
     Route: 042
     Dates: start: 20070726, end: 20100331
  2. PRENATAL VITAMINS [Concomitant]

REACTIONS (5)
  - NAUSEA [None]
  - DRUG EXPOSURE DURING PREGNANCY [None]
  - PROLONGED LABOUR [None]
  - PREGNANCY [None]
  - MULTIPLE SCLEROSIS RELAPSE [None]
